FAERS Safety Report 16023385 (Version 1)
Quarter: 2019Q1

REPORT INFORMATION
  Report Type: Spontaneous
  Country: JP (occurrence: JP)
  Receive Date: 20190301
  Receipt Date: 20190301
  Transmission Date: 20190418
  Serious: Yes (Other)
  Sender: FDA-Public Use
  Company Number: JP-PFIZER INC-2019093238

PATIENT

DRUGS (1)
  1. MEROPEN [Suspect]
     Active Substance: MEROPENEM
     Dosage: 0.5 G, DAILY
     Route: 041

REACTIONS (2)
  - Renal impairment [Unknown]
  - Blood potassium increased [Unknown]
